FAERS Safety Report 4288813-0 (Version None)
Quarter: 2004Q1

REPORT INFORMATION
  Report Type: 
  Country: None (occurrence: None)
  Receive Date: 20040206
  Receipt Date: 20040122
  Transmission Date: 20041129
  Serious: Yes (Death, Hospitalization)
  Sender: FDA-Public Use
  Company Number: US065297

PATIENT
  Age: 54 Year
  Sex: Male
  Weight: 75.6 kg

DRUGS (9)
  1. NEUPOGEN [Suspect]
     Indication: PERIPHERAL BLOOD STEM CELL APHERESIS
     Dosage: SEE IMAGE
     Dates: start: 20031231, end: 20040111
  2. NEUPOGEN [Suspect]
     Indication: PERIPHERAL BLOOD STEM CELL APHERESIS
     Dosage: SEE IMAGE
     Dates: start: 20040111, end: 20040111
  3. CYCLOPHOSPHAMIDE [Concomitant]
  4. VENLAFAXINE HCL [Concomitant]
  5. FUROSEMIDE [Concomitant]
  6. POTASSIUM [Concomitant]
  7. PROMETHAZINE HCL [Concomitant]
  8. ALPRAZOLAM [Concomitant]
  9. PANTOPRAZOLE SODIUM [Concomitant]

REACTIONS (12)
  - ABDOMINAL PAIN [None]
  - BLOOD ALKALINE PHOSPHATASE INCREASED [None]
  - BLOOD LACTATE DEHYDROGENASE INCREASED [None]
  - CARDIAC AMYLOIDOSIS [None]
  - EYE OEDEMA [None]
  - FEBRILE NEUTROPENIA [None]
  - GASTROINTESTINAL ULCER [None]
  - HAEMATEMESIS [None]
  - HAEMATOCHEZIA [None]
  - HAEMOGLOBIN DECREASED [None]
  - HYPOKALAEMIA [None]
  - RENAL FAILURE [None]
